FAERS Safety Report 5568971-8 (Version None)
Quarter: 2007Q4

REPORT INFORMATION
  Report Type: 
  Country: None (occurrence: None)
  Receive Date: 20071220
  Receipt Date: 20070413
  Transmission Date: 20080405
  Serious: No
  Sender: FDA-Public Use
  Company Number: A0647189A

PATIENT
  Age: 41 Year
  Sex: Female

DRUGS (1)
  1. AVODART [Suspect]
     Indication: ALOPECIA
     Dosage: .5MG PER DAY
     Route: 048
     Dates: start: 20060101

REACTIONS (2)
  - DRUG INEFFECTIVE [None]
  - PERIPHERAL COLDNESS [None]
